FAERS Safety Report 6822430-0 (Version None)
Quarter: 2010Q3

REPORT INFORMATION
  Report Type: 
  Country: None (occurrence: None)
  Receive Date: 20100707
  Receipt Date: 20100707
  Transmission Date: 20110219
  Serious: No
  Sender: FDA-Public Use
  Company Number: None

PATIENT
  Age: 14 Year
  Sex: Male
  Weight: 72.5755 kg

DRUGS (1)
  1. ACCUTANE [Suspect]
     Dosage: SHOT ONCE A MONTH

REACTIONS (3)
  - ABDOMINAL DISCOMFORT [None]
  - GASTRIC DISORDER [None]
  - VOMITING [None]
